FAERS Safety Report 10787270 (Version 1)
Quarter: 2015Q1

REPORT INFORMATION
  Report Type: Report from Study
  Country: GB (occurrence: GB)
  Receive Date: 20150211
  Receipt Date: 20150211
  Transmission Date: 20150721
  Serious: Yes (Other)
  Sender: FDA-Public Use
  Company Number: GB-AMGEN-GBRCT2015010638

PATIENT
  Age: 7 Year
  Sex: Female

DRUGS (17)
  1. KETAMINE                           /00171202/ [Concomitant]
     Active Substance: KETAMINE
     Dosage: 4-6 MG, BID
     Route: 048
     Dates: start: 20150119
  2. CHLORPHENIRAMIN [Concomitant]
     Dosage: 5 MG, AS NECESSARY EVERY HOUR
     Route: 042
     Dates: start: 20150129, end: 20150202
  3. NIFEDIPINE. [Concomitant]
     Active Substance: NIFEDIPINE
     Dosage: 4.25 MG, 3 SINGLE DOSES
     Route: 048
     Dates: start: 20150201, end: 20150202
  4. MEROPENEM. [Concomitant]
     Active Substance: MEROPENEM
     Dosage: 430 MG, TID
     Route: 042
     Dates: start: 20150119, end: 20150202
  5. AMBISONE [Concomitant]
     Active Substance: AMPHOTERICIN B
     Dosage: 8 MG, QD
     Dates: start: 20150119, end: 20150201
  6. METHOTREXATE [Concomitant]
     Active Substance: METHOTREXATE
     Dosage: 12 MG, QD
     Dates: start: 20150120, end: 20150120
  7. MORPHINE SULPHATE [Concomitant]
     Active Substance: MORPHINE SULFATE
     Dosage: 40-55 MG, BID
     Route: 048
     Dates: start: 20150119
  8. BLINATUMOMAB [Suspect]
     Active Substance: BLINATUMOMAB
     Indication: ACUTE LYMPHOCYTIC LEUKAEMIA
     Dosage: 5 MUG/KG, QD
     Route: 042
     Dates: start: 20150121, end: 20150202
  9. ALLOPURINOL. [Concomitant]
     Active Substance: ALLOPURINOL
     Dosage: 70 MG, TID
     Route: 048
     Dates: start: 20150119, end: 20150126
  10. TEICOPLANIN [Concomitant]
     Active Substance: TEICOPLANIN
     Dosage: 208 MG, TID
     Route: 042
     Dates: start: 20150123, end: 20150124
  11. SEPTRIN [Concomitant]
     Active Substance: SULFAMETHOXAZOLE\TRIMETHOPRIM
     Dosage: 360 MG, BID
     Route: 048
     Dates: start: 20150122
  12. LANSOPRAZOLE. [Concomitant]
     Active Substance: LANSOPRAZOLE
     Dosage: 15 MG, QD
     Route: 048
     Dates: start: 20150119
  13. GABAPENTIN. [Concomitant]
     Active Substance: GABAPENTIN
     Dosage: 200 MG, TOS
     Route: 048
     Dates: start: 20150119
  14. DEXAMETHASONE. [Concomitant]
     Active Substance: DEXAMETHASONE
     Dosage: 2 MG, TID
     Route: 048
     Dates: start: 20150120
  15. PARACETAMOL [Concomitant]
     Active Substance: ACETAMINOPHEN
     Dosage: 220-310 MG, AS NECESSARY
     Route: 048
     Dates: start: 20150119
  16. VANCOMYCIN [Concomitant]
     Active Substance: VANCOMYCIN
     Dosage: 420 MG, QID
     Route: 042
     Dates: start: 20150124, end: 20150202
  17. CASPOFUNGIN [Concomitant]
     Active Substance: CASPOFUNGIN
     Dosage: 40 MG, QD
     Route: 048
     Dates: start: 20150120

REACTIONS (2)
  - Drug ineffective [Not Recovered/Not Resolved]
  - Malignant neoplasm progression [Not Recovered/Not Resolved]

NARRATIVE: CASE EVENT DATE: 20150202
